FAERS Safety Report 23125531 (Version 1)
Quarter: 2023Q4

REPORT INFORMATION
  Report Type: Spontaneous
  Country: US (occurrence: US)
  Receive Date: 20231030
  Receipt Date: 20231030
  Transmission Date: 20240109
  Serious: No
  Sender: FDA-Public Use
  Company Number: US-SA-SAC20231024000411

PATIENT
  Sex: Female

DRUGS (6)
  1. DUPIXENT [Suspect]
     Active Substance: DUPILUMAB
     Indication: Dermatitis atopic
     Dosage: 200 MG, Q4W
     Route: 058
  2. EUCRISA [Concomitant]
     Active Substance: CRISABOROLE
  3. FLOVENT [Concomitant]
     Active Substance: FLUTICASONE PROPIONATE
  4. PREDNISOLONE [Concomitant]
     Active Substance: PREDNISOLONE
  5. TYLENOL [Concomitant]
     Active Substance: ACETAMINOPHEN
     Dosage: 10MG
  6. ZYRTEC [Concomitant]
     Active Substance: CETIRIZINE HYDROCHLORIDE
     Dosage: 10MG

REACTIONS (1)
  - Infected skin ulcer [Not Recovered/Not Resolved]
